FAERS Safety Report 10785681 (Version 1)
Quarter: 2015Q1

REPORT INFORMATION
  Report Type: Spontaneous
  Country: US (occurrence: None)
  Receive Date: 20150209
  Receipt Date: 20150209
  Transmission Date: 20150721
  Serious: Yes (Other)
  Sender: FDA-Public Use
  Company Number: 2015COV00019

PATIENT
  Sex: Female

DRUGS (1)
  1. HYDROXYCHLOROQUINE [Suspect]
     Active Substance: HYDROXYCHLOROQUINE
     Indication: SYSTEMIC LUPUS ERYTHEMATOSUS
     Route: 048
     Dates: start: 2001

REACTIONS (5)
  - Peripheral swelling [None]
  - Systemic lupus erythematosus [None]
  - Asthenia [None]
  - Joint swelling [None]
  - Inflammation [None]

NARRATIVE: CASE EVENT DATE: 2001
